FAERS Safety Report 8477136-1 (Version None)
Quarter: 2012Q2

REPORT INFORMATION
  Report Type: 
  Country: None (occurrence: None)
  Receive Date: 20120629
  Receipt Date: 20120620
  Transmission Date: 20120825
  Serious: Yes (Other)
  Sender: FDA-Public Use
  Company Number: US-PAR PHARMACEUTICAL, INC-2012SCPR004457

PATIENT

DRUGS (1)
  1. ISOSORBIDE DINITRATE [Suspect]
     Indication: PRODUCT USED FOR UNKNOWN INDICATION
     Dosage: UNK, UNKNOWN
     Route: 065

REACTIONS (5)
  - DYSGEUSIA [None]
  - PRODUCT QUALITY ISSUE [None]
  - CHEST DISCOMFORT [None]
  - PRODUCT TASTE ABNORMAL [None]
  - OEDEMA PERIPHERAL [None]
